FAERS Safety Report 20280931 (Version 1)
Quarter: 2022Q1

REPORT INFORMATION
  Report Type: Spontaneous
  Country: US (occurrence: US)
  Receive Date: 20220103
  Receipt Date: 20220103
  Transmission Date: 20220424
  Serious: No
  Sender: FDA-Public Use
  Company Number: US-ORGANON-O2112USA001990

PATIENT
  Age: 52 Year
  Sex: Female

DRUGS (2)
  1. DIPROLENE [Suspect]
     Active Substance: BETAMETHASONE DIPROPIONATE
     Indication: Granulomatosis with polyangiitis
     Dosage: UNK
     Route: 061
  2. PREDNISONE [Concomitant]
     Active Substance: PREDNISONE
     Indication: Granulomatosis with polyangiitis
     Dosage: 100 MILLIGRAM, QD (TAPERED OVER TWO WEEKS)

REACTIONS (1)
  - Product use in unapproved indication [Unknown]
